FAERS Safety Report 4613651-6 (Version None)
Quarter: 2005Q1

REPORT INFORMATION
  Report Type: 
  Country: None (occurrence: None)
  Receive Date: 20050318
  Receipt Date: 20050318
  Transmission Date: 20050727
  Serious: Yes (Hospitalization)
  Sender: FDA-Public Use
  Company Number: None

PATIENT
  Age: 60 Year
  Sex: Male
  Weight: 55.7924 kg

DRUGS (4)
  1. CARBOPLATIN [Suspect]
     Indication: METASTATIC NEOPLASM
     Dosage: 625 MG IVPB IN D5W 250ML OVER 30 MIN
     Route: 042
     Dates: start: 20040923
  2. DOCETAXEL [Suspect]
     Dosage: 135 MG IVPB IN NS250ML OVER 1 HOUR
     Route: 042
     Dates: start: 20040923
  3. ONDANSETRON [Concomitant]
  4. DEXAMETHASONE [Concomitant]

REACTIONS (3)
  - DEHYDRATION [None]
  - NAUSEA [None]
  - VOMITING [None]
